FAERS Safety Report 9783403 (Version 1)
Quarter: 2013Q4

REPORT INFORMATION
  Report Type: Spontaneous
  Country: US (occurrence: None)
  Receive Date: 20131223
  Receipt Date: 20131223
  Transmission Date: 20140711
  Serious: Yes (Other)
  Sender: FDA-Public Use
  Company Number: SYM-2013-14204

PATIENT
  Age: 79 Year
  Sex: Male

DRUGS (2)
  1. TIMOLOL [Suspect]
     Indication: GLAUCOMA
     Dosage: 1 DROP IN BOTH EYES, EVERY MORNING, OPHTHALMIC
     Route: 047
     Dates: start: 20130208
  2. ALLOPURINOL (ALLOPURINOL) (ALLOPURINOL) [Concomitant]

REACTIONS (8)
  - Depression [None]
  - Hallucination [None]
  - Disorientation [None]
  - Anxiety [None]
  - Nervousness [None]
  - Dementia [None]
  - Amnesia [None]
  - Abnormal behaviour [None]
